FAERS Safety Report 14199133 (Version 2)
Quarter: 2017Q4

REPORT INFORMATION
  Report Type: Report from Study
  Country: CR (occurrence: CR)
  Receive Date: 20171117
  Receipt Date: 20171205
  Transmission Date: 20180321
  Serious: Yes (Other)
  Sender: FDA-Public Use
  Company Number: PHHY2017CR168660

PATIENT
  Sex: Female
  Weight: 100 kg

DRUGS (3)
  1. EXFORGE HCT [Suspect]
     Active Substance: AMLODIPINE BESYLATE\HYDROCHLOROTHIAZIDE\VALSARTAN
     Dosage: 1 DF (AMLODIPINE 10MG, HYDROCHLOROTHIAZIDE 12.5MG AND VALSARTAN 160MG), QD
     Route: 048
  2. EXFORGE HCT [Suspect]
     Active Substance: AMLODIPINE BESYLATE\HYDROCHLOROTHIAZIDE\VALSARTAN
     Indication: HYPERTENSION
     Dosage: 1 DF (AMLODIPINE 5MG, HYDROCHLOROTHIAZIDE 12.5MG AND VALSARTAN 160MG), QD
     Route: 048
  3. GLIBENCLAMIDE [Suspect]
     Active Substance: GLYBURIDE
     Indication: PRODUCT USED FOR UNKNOWN INDICATION
     Dosage: 1 DF, QD
     Route: 048

REACTIONS (15)
  - Epistaxis [Unknown]
  - Polyp [Unknown]
  - Hiatus hernia [Unknown]
  - Hepatic steatosis [Unknown]
  - Hyperhidrosis [Unknown]
  - Blood pressure inadequately controlled [Unknown]
  - Hypoacusis [Unknown]
  - Gastritis [Unknown]
  - Fat intolerance [Unknown]
  - Blood glucose decreased [Unknown]
  - Eye haemorrhage [Unknown]
  - Depression [Unknown]
  - Memory impairment [Unknown]
  - Concomitant disease aggravated [Unknown]
  - Dizziness [Unknown]
